FAERS Safety Report 23824800 (Version 1)
Quarter: 2024Q2

REPORT INFORMATION
  Report Type: Spontaneous
  Country: US (occurrence: US)
  Receive Date: 20240507
  Receipt Date: 20240507
  Transmission Date: 20240716
  Serious: No
  Sender: FDA-Public Use
  Company Number: US-ELI_LILLY_AND_COMPANY-US202405002322

PATIENT
  Sex: Female

DRUGS (3)
  1. VERZENIO [Suspect]
     Active Substance: ABEMACICLIB
     Indication: Breast cancer metastatic
     Dosage: UNK UNK, UNKNOWN
     Route: 065
     Dates: start: 20240301
  2. VERZENIO [Suspect]
     Active Substance: ABEMACICLIB
     Dosage: 200 MG, UNKNOWN
     Route: 065
     Dates: start: 20240301
  3. VERZENIO [Suspect]
     Active Substance: ABEMACICLIB
     Dosage: 50 MG, UNKNOWN
     Route: 065
     Dates: start: 20240301

REACTIONS (3)
  - Respiration abnormal [Unknown]
  - Abdominal discomfort [Unknown]
  - Cough [Unknown]
